FAERS Safety Report 24870146 (Version 1)
Quarter: 2025Q1

REPORT INFORMATION
  Report Type: Spontaneous
  Country: US (occurrence: US)
  Receive Date: 20250121
  Receipt Date: 20250121
  Transmission Date: 20250409
  Serious: No
  Sender: SANOFI AVENTIS
  Company Number: US-SA-2023SA031767

PATIENT
  Sex: Female

DRUGS (41)
  1. DUPIXENT [Suspect]
     Active Substance: DUPILUMAB
     Indication: Nasal polyps
     Dosage: 300 MG, QOW
     Route: 058
     Dates: start: 20221214
  2. HYDROXYZINE HYDROCHLORIDE [Concomitant]
     Active Substance: HYDROXYZINE HYDROCHLORIDE
  3. HYDROXYZINE HYDROCHLORIDE [Concomitant]
     Active Substance: HYDROXYZINE HYDROCHLORIDE
  4. LEXIVA [Concomitant]
     Active Substance: FOSAMPRENAVIR CALCIUM
  5. IBUPROFEN [Concomitant]
     Active Substance: IBUPROFEN
  6. IBUPROFEN [Concomitant]
     Active Substance: IBUPROFEN
  7. VITAMIN B6 [Concomitant]
     Active Substance: PYRIDOXINE HYDROCHLORIDE
  8. NASALCROM [Concomitant]
     Active Substance: CROMOLYN SODIUM
  9. FLOVENT [Concomitant]
     Active Substance: FLUTICASONE PROPIONATE
  10. PROAIR RESPICLICK [Concomitant]
     Active Substance: ALBUTEROL SULFATE
  11. GUAIFENESIN [Concomitant]
     Active Substance: GUAIFENESIN
  12. GUAIFENESIN [Concomitant]
     Active Substance: GUAIFENESIN
  13. GUAIFENESIN [Concomitant]
     Active Substance: GUAIFENESIN
  14. ZINC [Concomitant]
     Active Substance: ZINC
  15. ZINC [Concomitant]
     Active Substance: ZINC
  16. PROTONIX [Concomitant]
     Active Substance: PANTOPRAZOLE SODIUM
  17. PROTONIX [Concomitant]
     Active Substance: PANTOPRAZOLE SODIUM
  18. GABAPENTIN [Concomitant]
     Active Substance: GABAPENTIN
  19. MAXALT [Concomitant]
     Active Substance: RIZATRIPTAN BENZOATE
  20. MAGNESIUM [Concomitant]
     Active Substance: MAGNESIUM
  21. GRAPEFRUIT [Concomitant]
     Active Substance: GRAPEFRUIT
  22. CHARCOAL [Concomitant]
     Active Substance: ACTIVATED CHARCOAL
  23. NASACORT [Concomitant]
     Active Substance: TRIAMCINOLONE ACETONIDE
  24. HERBALS [Concomitant]
     Active Substance: HERBALS
  25. L-GLUTAMINE [Concomitant]
     Active Substance: GLUTAMINE
  26. CYCLOBENZAPRINE [Concomitant]
     Active Substance: CYCLOBENZAPRINE
  27. PROBIOTICS NOS [Concomitant]
     Active Substance: PROBIOTICS NOS
  28. ONDANSETRON [Concomitant]
     Active Substance: ONDANSETRON
  29. Grapeseed extract [Concomitant]
  30. CRANBERRY [Concomitant]
     Active Substance: CRANBERRY
  31. DIMETHYL SULFONE [Concomitant]
     Active Substance: DIMETHYL SULFONE
  32. VITAMIN C [Concomitant]
     Active Substance: ASCORBIC ACID
  33. VITAMIN C [Concomitant]
     Active Substance: ASCORBIC ACID
  34. VITAMIN D [Concomitant]
     Active Substance: VITAMIN D NOS
  35. FLUTICASONE [Concomitant]
     Active Substance: FLUTICASONE
  36. TUMS EX [Concomitant]
     Active Substance: CALCIUM CARBONATE
  37. WORMWOOD [Concomitant]
     Active Substance: WORMWOOD
  38. EMGALITY [Concomitant]
     Active Substance: GALCANEZUMAB-GNLM
  39. ARMOUR THYROID [Concomitant]
     Active Substance: THYROID, PORCINE
  40. AIMOVIG [Concomitant]
     Active Substance: ERENUMAB-AOOE
  41. BERBERINE [Concomitant]
     Active Substance: BERBERINE

REACTIONS (2)
  - Injection site pain [Unknown]
  - Therapeutic product effect incomplete [Unknown]
